FAERS Safety Report 4425404-2 (Version None)
Quarter: 2004Q3

REPORT INFORMATION
  Report Type: 
  Country: None (occurrence: None)
  Receive Date: 20040813
  Receipt Date: 20040624
  Transmission Date: 20050211
  Serious: Yes (Other)
  Sender: FDA-Public Use
  Company Number: SE-GLAXOSMITHKLINE-B0341228A

PATIENT
  Age: 60 Year
  Sex: Male

DRUGS (11)
  1. SEREVENT [Suspect]
     Indication: BRONCHITIS CHRONIC
     Route: 055
     Dates: start: 20030324, end: 20030408
  2. SERETIDE [Suspect]
     Indication: BRONCHITIS CHRONIC
     Route: 055
     Dates: end: 20040408
  3. FOLACIN [Concomitant]
  4. LANACRIST [Concomitant]
  5. BENADON [Concomitant]
  6. VIBRAMYCIN [Concomitant]
  7. EMGESAN [Concomitant]
  8. SHAMPOO FUNGORAL [Concomitant]
  9. TROMBYL [Concomitant]
  10. FLUTICASONE PROPIONATE [Concomitant]
  11. OXIS [Concomitant]

REACTIONS (3)
  - LEUKOCYTOCLASTIC VASCULITIS [None]
  - RASH [None]
  - SKIN HYPERPIGMENTATION [None]
